FAERS Safety Report 12500550 (Version 1)
Quarter: 2016Q2

REPORT INFORMATION
  Report Type: Spontaneous
  Country: KR (occurrence: KR)
  Receive Date: 20160627
  Receipt Date: 20160627
  Transmission Date: 20160815
  Serious: Yes (Death, Life-Threatening, Hospitalization)
  Sender: FDA-Public Use
  Company Number: KR-CELGENEUS-286-50794-13023703

PATIENT
  Age: 58 Year
  Sex: Male
  Weight: 47.8 kg

DRUGS (9)
  1. TIROPRAMIDE HYDROCHLORIDE [Concomitant]
     Indication: PREMEDICATION
     Route: 048
     Dates: start: 20121219, end: 20121223
  2. LEVOFLOXACIN. [Concomitant]
     Active Substance: LEVOFLOXACIN
     Indication: PYREXIA
     Dosage: 500 MILLIGRAM
     Route: 041
     Dates: start: 20130306, end: 20130320
  3. VIDAZA [Suspect]
     Active Substance: AZACITIDINE
     Indication: MYELODYSPLASTIC SYNDROME
     Route: 065
     Dates: start: 20120111, end: 20120118
  4. IMIPENEM AND CILASTATIN [Concomitant]
     Active Substance: CILASTATIN SODIUM\IMIPENEM
     Indication: PYREXIA
     Dosage: 60 MILLILITER
     Route: 041
     Dates: start: 20130204, end: 20130212
  5. AMPHOTERICIN B. [Concomitant]
     Active Substance: AMPHOTERICIN B
     Indication: PYREXIA
     Dosage: 1.2 UNITS
     Route: 041
     Dates: start: 20130216, end: 20130301
  6. METRONIDAZOLE. [Concomitant]
     Active Substance: METRONIDAZOLE
     Indication: PYREXIA
     Dosage: 2 UNITS
     Route: 048
     Dates: start: 20130215, end: 20130223
  7. VIDAZA [Suspect]
     Active Substance: AZACITIDINE
     Route: 065
     Dates: start: 20121217, end: 20121223
  8. ENOXAPARIN SODIUM. [Concomitant]
     Active Substance: ENOXAPARIN SODIUM
     Indication: SPLENECTOMY
     Route: 058
     Dates: start: 20130309
  9. NIZATIDINE. [Concomitant]
     Active Substance: NIZATIDINE
     Indication: PREMEDICATION
     Route: 048
     Dates: start: 20121218, end: 20121223

REACTIONS (3)
  - Gastrointestinal haemorrhage [Fatal]
  - Splenic infarction [Recovered/Resolved]
  - Pneumonia [Not Recovered/Not Resolved]

NARRATIVE: CASE EVENT DATE: 20130121
